FAERS Safety Report 4414141-6 (Version None)
Quarter: 2004Q3

REPORT INFORMATION
  Report Type: 
  Country: None (occurrence: None)
  Receive Date: 20040729
  Receipt Date: 20040719
  Transmission Date: 20050211
  Serious: Yes (Other)
  Sender: FDA-Public Use
  Company Number: M2004-0964

PATIENT
  Sex: Male
  Weight: 4.6 kg

DRUGS (4)
  1. FUROSEMIDE [Suspect]
     Indication: HEART DISEASE CONGENITAL
     Dosage: 1 MG/KG
  2. SPIRONOLACTONE [Suspect]
     Dosage: 0.4 MG/KG
  3. DIAZOXIDE [Suspect]
  4. ACETYLSALICYLIC ACID, UNK, UNKNOWN MANUFACTURER 5 MG/KG [Suspect]

REACTIONS (3)
  - DRUG INTERACTION [None]
  - HYPERGLYCAEMIA [None]
  - HYPOGLYCAEMIA [None]
